FAERS Safety Report 17566856 (Version 2)
Quarter: 2020Q2

REPORT INFORMATION
  Report Type: Spontaneous
  Country: JP (occurrence: JP)
  Receive Date: 20200320
  Receipt Date: 20200526
  Transmission Date: 20200713
  Serious: Yes (Hospitalization)
  Sender: FDA-Public Use
  Company Number: JP-NOVOPROD-718769

PATIENT
  Age: 80 Year
  Sex: Male
  Weight: 50 kg

DRUGS (13)
  1. TRESIBA [Suspect]
     Active Substance: INSULIN DEGLUDEC
     Dosage: 10 UNITS
     Route: 058
     Dates: start: 20190411
  2. TRESIBA [Suspect]
     Active Substance: INSULIN DEGLUDEC
     Dosage: 3 UNITS
     Route: 058
     Dates: start: 20200116
  3. TRESIBA [Suspect]
     Active Substance: INSULIN DEGLUDEC
     Dosage: 8 UNITS
     Route: 058
     Dates: start: 20190328
  4. TRESIBA [Suspect]
     Active Substance: INSULIN DEGLUDEC
     Dosage: 8 UNITS
     Route: 058
     Dates: start: 20190613
  5. TRESIBA [Suspect]
     Active Substance: INSULIN DEGLUDEC
     Dosage: 6 UNITS
     Route: 058
     Dates: start: 20190307
  6. TRESIBA [Suspect]
     Active Substance: INSULIN DEGLUDEC
     Dosage: 6 UNITS
     Route: 058
     Dates: start: 20190815
  7. TRESIBA [Suspect]
     Active Substance: INSULIN DEGLUDEC
     Dosage: 4 UNITS
     Route: 058
     Dates: start: 20190926
  8. SITAGLIPTIN PHOSPHATE MONOHYDRATE [Concomitant]
     Active Substance: SITAGLIPTIN PHOSPHATE
     Indication: TYPE 2 DIABETES MELLITUS
     Dosage: 50 MG, QD
     Route: 048
  9. TRESIBA [Suspect]
     Active Substance: INSULIN DEGLUDEC
     Indication: TYPE 2 DIABETES MELLITUS
     Dosage: 4 IU, QD (BEFORE BREAKFAST)
     Route: 058
     Dates: start: 20190201
  10. TRESIBA [Suspect]
     Active Substance: INSULIN DEGLUDEC
     Dosage: 2 UNITS
     Route: 058
     Dates: start: 20191031
  11. TRESIBA [Suspect]
     Active Substance: INSULIN DEGLUDEC
     Dosage: 6 UNITS
     Route: 058
     Dates: start: 20200213, end: 20200226
  12. TRESIBA [Suspect]
     Active Substance: INSULIN DEGLUDEC
     Dosage: 4 UNITS
     Route: 058
     Dates: start: 20190711
  13. METGLUCO [Concomitant]
     Active Substance: METFORMIN HYDROCHLORIDE
     Indication: TYPE 2 DIABETES MELLITUS
     Dosage: 250 MG, QD
     Route: 048

REACTIONS (4)
  - Product dose omission [Unknown]
  - Hypoglycaemic encephalopathy [Recovered/Resolved with Sequelae]
  - Diabetes mellitus inadequate control [Unknown]
  - Hypoglycaemic unconsciousness [Recovered/Resolved]

NARRATIVE: CASE EVENT DATE: 20200229
